FAERS Safety Report 10264813 (Version 2)
Quarter: 2014Q3

REPORT INFORMATION
  Report Type: Spontaneous
  Country: IT (occurrence: None)
  Receive Date: 20140624
  Receipt Date: 20140708
  Transmission Date: 20150326
  Serious: Yes (Hospitalization)
  Sender: FDA-Public Use
  Company Number: AUR-APL-2014-06586

PATIENT
  Age: 49 Year
  Sex: Male

DRUGS (9)
  1. CARDIOASPIRIN [Concomitant]
     Active Substance: ASPIRIN
  2. PANTOPRAZOLE [Concomitant]
     Active Substance: PANTOPRAZOLE SODIUM
  3. HUMALOG [Concomitant]
     Active Substance: INSULIN LISPRO
  4. NORVASC [Concomitant]
     Active Substance: AMLODIPINE BESYLATE
  5. TRITEC [Concomitant]
     Active Substance: RANITIDINE BISMUTH CITRATE
  6. LANTUS [Concomitant]
     Active Substance: INSULIN GLARGINE
  7. EUTIROX [Concomitant]
     Active Substance: LEVOTHYROXINE SODIUM
  8. AMOXICILLINA [Suspect]
     Active Substance: AMOXICILLIN
     Indication: COUGH
     Route: 048
     Dates: start: 20140130, end: 20140131
  9. EPREX [Concomitant]
     Active Substance: ERYTHROPOIETIN

REACTIONS (2)
  - Urticaria [None]
  - Laryngeal oedema [None]

NARRATIVE: CASE EVENT DATE: 20140130
